FAERS Safety Report 15480086 (Version 1)
Quarter: 2018Q4

REPORT INFORMATION
  Report Type: Spontaneous
  Country: US (occurrence: US)
  Receive Date: 20181009
  Receipt Date: 20181009
  Transmission Date: 20190205
  Serious: Yes (Hospitalization)
  Sender: FDA-Public Use
  Company Number: US-NEUROCRINE BIOSCIENCES INC.-2018NBI02958

PATIENT
  Age: 52 Year
  Sex: Male

DRUGS (4)
  1. INGREZZA [Suspect]
     Active Substance: VALBENAZINE
     Indication: PRODUCT USED FOR UNKNOWN INDICATION
     Dosage: ABOUT 6 WEEKS OF INGREZZA THERAPY
  2. INVEGA [Suspect]
     Active Substance: PALIPERIDONE
     Indication: PRODUCT USED FOR UNKNOWN INDICATION
  3. FLUPHENAZINE [Concomitant]
     Active Substance: FLUPHENAZINE
     Dosage: FOR 26 YEARS
  4. TRIHEXYPHENIDYL [Concomitant]
     Active Substance: TRIHEXYPHENIDYL
     Dosage: FOR 26 YEARS

REACTIONS (3)
  - Tardive dyskinesia [Unknown]
  - Agitation [Unknown]
  - Paranoia [Recovered/Resolved]
